FAERS Safety Report 19809897 (Version 1)
Quarter: 2021Q3

REPORT INFORMATION
  Report Type: Spontaneous
  Country: US (occurrence: US)
  Receive Date: 20210909
  Receipt Date: 20210909
  Transmission Date: 20211014
  Serious: Yes (Hospitalization)
  Sender: FDA-Public Use
  Company Number: None

PATIENT
  Age: 63 Year
  Sex: Male
  Weight: 99.8 kg

DRUGS (5)
  1. FLONASE 2 SPRAYS EACH NARE DAILY [Concomitant]
  2. REGEN?COV [Suspect]
     Active Substance: CASIRIVIMAB\IMDEVIMAB
     Indication: COVID-19
     Dosage: ?          OTHER FREQUENCY:ONCE;?
     Route: 042
     Dates: start: 20210907, end: 20210907
  3. GLIPIZIDE XL 5 MG DAILY [Concomitant]
  4. MINOCYCLINE 50 MG DAILY [Concomitant]
  5. LIPITOR 20 MG DAILY [Concomitant]

REACTIONS (7)
  - Infusion related reaction [None]
  - Loss of consciousness [None]
  - Unresponsive to stimuli [None]
  - Amnesia [None]
  - Pallor [None]
  - Hyperhidrosis [None]
  - Heart rate decreased [None]

NARRATIVE: CASE EVENT DATE: 20210907
